FAERS Safety Report 6398841-7 (Version None)
Quarter: 2009Q4

REPORT INFORMATION
  Report Type: 
  Country: None (occurrence: None)
  Receive Date: 20091013
  Receipt Date: 20090929
  Transmission Date: 20100525
  Serious: Yes (Other)
  Sender: FDA-Public Use
  Company Number: AU-MYLANLABS-2009S1017074

PATIENT
  Age: 53 Year
  Sex: Male

DRUGS (11)
  1. ZIDOVUDINE [Suspect]
     Indication: HIV INFECTION
  2. LAMIVUDINE [Suspect]
     Indication: HIV INFECTION
  3. NELFINAVIR MESYLATE [Suspect]
     Indication: HIV INFECTION
  4. NEVIRAPINE [Suspect]
     Indication: HIV INFECTION
  5. RITONAVIR [Suspect]
     Indication: HIV INFECTION
  6. SAQUINAVIR [Suspect]
     Indication: HIV INFECTION
  7. ATAZANAVIR [Suspect]
     Indication: HIV INFECTION
  8. DIDANOSINE [Suspect]
     Indication: HIV INFECTION
  9. EFAVIRENZ [Suspect]
     Indication: HIV INFECTION
  10. EMTRICITABINE [Suspect]
     Indication: HIV INFECTION
  11. TENOFOVIR [Suspect]
     Indication: HIV INFECTION

REACTIONS (1)
  - PARKINSONISM [None]
